FAERS Safety Report 8471098-9 (Version None)
Quarter: 2012Q2

REPORT INFORMATION
  Report Type: 
  Country: None (occurrence: None)
  Receive Date: 20120621
  Receipt Date: 20120607
  Transmission Date: 20120825
  Serious: Yes (Life-Threatening, Hospitalization, Other)
  Sender: FDA-Public Use
  Company Number: 20120332

PATIENT
  Sex: Male
  Weight: 100 kg

DRUGS (8)
  1. NICARDIPINE HCL [Suspect]
     Indication: HYPERTENSION
     Dosage: 4.16 UG/KG/MIN
  2. NICARDIPINE HCL [Suspect]
     Indication: TACHYCARDIA
     Dosage: 4.16 UG/KG/MIN
  3. SEVOFLURANE [Suspect]
     Indication: MAINTENANCE OF ANAESTHESIA
     Dosage: UNKNOWN
  4. VECURONIUM BROMIDE [Concomitant]
  5. DILTIAZEM [Suspect]
     Indication: HYPERTENSION
     Dosage: 4.5 UG/KG/MIN
  6. MIDAZOLAM [Suspect]
     Indication: SEDATION
     Dosage: 3 MG/HOUR, INTRAVENOUS
     Route: 042
  7. THIAMYLAL SODIUM [Concomitant]
  8. FENTANYL CITRATE [Concomitant]

REACTIONS (14)
  - TOXICITY TO VARIOUS AGENTS [None]
  - POST PROCEDURAL COMPLICATION [None]
  - DEPRESSED LEVEL OF CONSCIOUSNESS [None]
  - SINUS ARREST [None]
  - ATRIAL FIBRILLATION [None]
  - NODAL RHYTHM [None]
  - OXYGEN SATURATION DECREASED [None]
  - CONTINUOUS HAEMODIAFILTRATION [None]
  - ATRIOVENTRICULAR BLOCK COMPLETE [None]
  - SEDATION [None]
  - CARDIAC ARREST [None]
  - DRUG INTERACTION [None]
  - ANAESTHETIC COMPLICATION CARDIAC [None]
  - GLOSSOPTOSIS [None]
